FAERS Safety Report 16777650 (Version 1)
Quarter: 2019Q3

REPORT INFORMATION
  Report Type: Spontaneous
  Country: NL (occurrence: NL)
  Receive Date: 20190905
  Receipt Date: 20190905
  Transmission Date: 20191005
  Serious: Yes (Other)
  Sender: FDA-Public Use
  Company Number: NL-PFIZER INC-2019376728

PATIENT
  Age: 42 Year
  Sex: Female

DRUGS (1)
  1. STEDIRIL-30 [Suspect]
     Active Substance: ETHINYL ESTRADIOL\LEVONORGESTREL

REACTIONS (2)
  - Pseudoporphyria [Unknown]
  - Blister [Unknown]
